FAERS Safety Report 8308101-2 (Version None)
Quarter: 2012Q2

REPORT INFORMATION
  Report Type: 
  Country: None (occurrence: None)
  Receive Date: 20120424
  Receipt Date: 20120413
  Transmission Date: 20120825
  Serious: Yes (Hospitalization)
  Sender: FDA-Public Use
  Company Number: GB-ROCHE-1041376

PATIENT
  Sex: Male
  Weight: 91 kg

DRUGS (5)
  1. ACETAMINOPHEN [Concomitant]
  2. PANDOL [Concomitant]
  3. PEGASYS [Suspect]
     Indication: HEPATITIS C
     Route: 058
     Dates: start: 20120110
  4. BI 201335 (HCV PROTEASE INHIBITOR) [Suspect]
     Indication: HEPATITIS C
     Route: 048
     Dates: start: 20120110
  5. COPEGUS [Suspect]
     Indication: HEPATITIS C
     Route: 048
     Dates: start: 20120110

REACTIONS (5)
  - DIARRHOEA [None]
  - RASH [None]
  - HYPERHIDROSIS [None]
  - ABDOMINAL PAIN [None]
  - DIVERTICULITIS [None]
